FAERS Safety Report 13125810 (Version 5)
Quarter: 2017Q2

REPORT INFORMATION
  Report Type: Report from Study
  Country: IE (occurrence: IE)
  Receive Date: 20170118
  Receipt Date: 20170421
  Transmission Date: 20170830
  Serious: Yes (Other)
  Sender: FDA-Public Use
  Company Number: IE-JNJFOC-20170113195

PATIENT
  Age: 73 Year
  Sex: Male

DRUGS (8)
  1. IMBRUVICA [Suspect]
     Active Substance: IBRUTINIB
     Indication: CHRONIC LYMPHOCYTIC LEUKAEMIA
     Route: 048
  2. TRITACE [Concomitant]
     Active Substance: RAMIPRIL
     Route: 050
  3. ALLOPURINOL. [Concomitant]
     Active Substance: ALLOPURINOL
     Route: 050
  4. COMBODART [Concomitant]
     Active Substance: DUTASTERIDE\TAMSULOSIN
     Route: 050
  5. IMBRUVICA [Suspect]
     Active Substance: IBRUTINIB
     Indication: CHRONIC LYMPHOCYTIC LEUKAEMIA
     Route: 048
     Dates: start: 201609
  6. CRESTOR [Concomitant]
     Active Substance: ROSUVASTATIN CALCIUM
     Route: 050
  7. ADALAT [Concomitant]
     Active Substance: NIFEDIPINE
     Route: 050
  8. DESUNIN [Concomitant]
     Active Substance: CHOLECALCIFEROL
     Dosage: 800 UNITS
     Route: 050

REACTIONS (6)
  - Increased tendency to bruise [Not Recovered/Not Resolved]
  - Irritability [Unknown]
  - Haemorrhoidal haemorrhage [Unknown]
  - Muscle spasms [Unknown]
  - Rectal haemorrhage [Not Recovered/Not Resolved]
  - White blood cell count increased [Recovering/Resolving]

NARRATIVE: CASE EVENT DATE: 20161114
